FAERS Safety Report 21307754 (Version 2)
Quarter: 2022Q4

REPORT INFORMATION
  Report Type: Spontaneous
  Country: DE (occurrence: DE)
  Receive Date: 20220908
  Receipt Date: 20221018
  Transmission Date: 20230113
  Serious: Yes (Death, Other)
  Sender: FDA-Public Use
  Company Number: DE-NOVARTISPH-NVSC2022DE202105

PATIENT
  Age: 69 Year
  Sex: Male
  Weight: 67 kg

DRUGS (5)
  1. DOCETAXEL [Suspect]
     Active Substance: DOCETAXEL
     Indication: Non-small cell lung cancer
     Dosage: 148 MG, QD
     Route: 065
     Dates: start: 20210830, end: 20211213
  2. NINTEDANIB [Suspect]
     Active Substance: NINTEDANIB
     Indication: Non-small cell lung cancer
     Dosage: 200 MG, Q12H
     Route: 065
     Dates: start: 202108, end: 202202
  3. NINTEDANIB [Suspect]
     Active Substance: NINTEDANIB
     Dosage: 400 MG, QD
     Route: 065
     Dates: start: 20211031, end: 20220301
  4. NINTEDANIB [Suspect]
     Active Substance: NINTEDANIB
     Dosage: 200 MG, QD
     Route: 065
     Dates: start: 20220302, end: 20220406
  5. NINTEDANIB [Suspect]
     Active Substance: NINTEDANIB
     Dosage: 100 MG, Q12H
     Route: 065
     Dates: start: 20220302, end: 20220406

REACTIONS (6)
  - Malignant neoplasm progression [Fatal]
  - General physical health deterioration [Fatal]
  - Decreased appetite [Not Recovered/Not Resolved]
  - Diarrhoea [Recovered/Resolved]
  - Asthenia [Not Recovered/Not Resolved]
  - Diarrhoea [Not Recovered/Not Resolved]

NARRATIVE: CASE EVENT DATE: 20211123
